FAERS Safety Report 17070370 (Version 1)
Quarter: 2019Q4

REPORT INFORMATION
  Report Type: Spontaneous
  Country: US (occurrence: US)
  Receive Date: 20191025
  Receipt Date: 20191025
  Transmission Date: 20200122
  Serious: Yes (Hospitalization)
  Sender: FDA-Public Use
  Company Number: None

PATIENT
  Age: 15 Year

DRUGS (4)
  1. TOPROL XL [Concomitant]
     Active Substance: METOPROLOL SUCCINATE
  2. NUTROPIN AQ [Suspect]
     Active Substance: SOMATROPIN
     Indication: CHRONIC KIDNEY DISEASE
     Dosage: 6 DAYS PER WEEK
     Route: 058
     Dates: start: 20181025
  3. CANDESARTAN. [Concomitant]
     Active Substance: CANDESARTAN
  4. NUTROPIN AQ [Suspect]
     Active Substance: SOMATROPIN
     Indication: CHRONIC KIDNEY DISEASE
     Dosage: ?          OTHER FREQUENCY:6 DAYS PER WEEK;?
     Route: 058
     Dates: start: 20181025

REACTIONS (2)
  - Migraine [None]
  - Seizure [None]

NARRATIVE: CASE EVENT DATE: 20191023
